FAERS Safety Report 6157193-8 (Version None)
Quarter: 2009Q2

REPORT INFORMATION
  Report Type: 
  Country: None (occurrence: None)
  Receive Date: 20090413
  Receipt Date: 20090326
  Transmission Date: 20091009
  Serious: Yes (Other)
  Sender: FDA-Public Use
  Company Number: 000607

PATIENT
  Age: 35 Year
  Sex: Female

DRUGS (1)
  1. OMEPRAZOLE [Suspect]
     Dosage: (PRICK TEST WITH 40 MG/ML INTRADERMAL)
     Route: 023

REACTIONS (4)
  - ABDOMINAL PAIN [None]
  - ANAPHYLACTIC REACTION [None]
  - ANGIOEDEMA [None]
  - DRUG HYPERSENSITIVITY [None]
